FAERS Safety Report 7579733-4 (Version None)
Quarter: 2011Q2

REPORT INFORMATION
  Report Type: 
  Country: None (occurrence: None)
  Receive Date: 20110629
  Receipt Date: 20110615
  Transmission Date: 20111010
  Serious: Yes (Hospitalization)
  Sender: FDA-Public Use
  Company Number: CA-JNJFOC-20110607831

PATIENT
  Sex: Female
  Weight: 76 kg

DRUGS (2)
  1. CELEXA [Concomitant]
     Route: 065
  2. REMICADE [Suspect]
     Indication: COLITIS ULCERATIVE
     Dosage: 10MG/ML
     Route: 042
     Dates: start: 20091113

REACTIONS (1)
  - OVARIAN CYST [None]
